FAERS Safety Report 8809169 (Version 1)
Quarter: 2012Q4

REPORT INFORMATION
  Report Type: Spontaneous
  Country: US (occurrence: None)
  Receive Date: 20120921
  Receipt Date: 20120921
  Transmission Date: 20130627
  Serious: Yes (Hospitalization, Other)
  Sender: FDA-Public Use
  Company Number: None

PATIENT
  Age: 42 Year
  Sex: Male
  Weight: 114.76 kg

DRUGS (1)
  1. KENALOG-10 [Suspect]
     Indication: SHOULDER PAIN
     Dosage: 1 Intra-articular
     Route: 014
     Dates: start: 20120410, end: 20120410

REACTIONS (25)
  - Chest pain [None]
  - Heart rate increased [None]
  - Anxiety [None]
  - Blood glucose increased [None]
  - Blood pressure increased [None]
  - Fatigue [None]
  - Pollakiuria [None]
  - Gastric disorder [None]
  - Tremor [None]
  - Irritability [None]
  - Depression [None]
  - Chills [None]
  - Temperature intolerance [None]
  - Skin burning sensation [None]
  - Hyperaesthesia [None]
  - Decreased appetite [None]
  - Hypotension [None]
  - Disturbance in attention [None]
  - Headache [None]
  - Lethargy [None]
  - Diarrhoea [None]
  - Insomnia [None]
  - Suicidal ideation [None]
  - Anxiety [None]
  - Obsessive-compulsive disorder [None]
